FAERS Safety Report 5327821-5 (Version None)
Quarter: 2007Q2

REPORT INFORMATION
  Report Type: 
  Country: None (occurrence: None)
  Receive Date: 20070517
  Receipt Date: 20070508
  Transmission Date: 20071010
  Serious: Yes (Other)
  Sender: FDA-Public Use
  Company Number: DE-JNJFOC-20070501785

PATIENT
  Age: 42 Year
  Sex: Female

DRUGS (3)
  1. TOPAMAX [Suspect]
     Route: 048
  2. TOPAMAX [Suspect]
     Route: 048
  3. TOPAMAX [Suspect]
     Indication: EPILEPSY
     Route: 048

REACTIONS (4)
  - DECREASED ACTIVITY [None]
  - MENTAL DISORDER [None]
  - MOTOR DYSFUNCTION [None]
  - PSEUDODEMENTIA [None]
